FAERS Safety Report 22113693 (Version 3)
Quarter: 2023Q2

REPORT INFORMATION
  Report Type: Spontaneous
  Country: US (occurrence: US)
  Receive Date: 20230320
  Receipt Date: 20230505
  Transmission Date: 20230722
  Serious: No
  Sender: FDA-Public Use
  Company Number: US-AMGEN-USASP2023045218

PATIENT
  Age: 77 Year
  Sex: Female
  Weight: 56.8 kg

DRUGS (3)
  1. NEULASTA [Suspect]
     Active Substance: PEGFILGRASTIM
     Indication: Endometrial cancer
     Dosage: 6 MILLIGRAM
     Route: 065
  2. NEULASTA [Suspect]
     Active Substance: PEGFILGRASTIM
     Indication: Ovarian cancer
     Dosage: 6 MILLIGRAM
     Route: 065
  3. NEULASTA [Suspect]
     Active Substance: PEGFILGRASTIM
     Indication: Fallopian tube cancer

REACTIONS (2)
  - Unintentional medical device removal [Recovered/Resolved]
  - Device use error [Recovered/Resolved]

NARRATIVE: CASE EVENT DATE: 20230109
